FAERS Safety Report 8544775-9 (Version None)
Quarter: 2012Q3

REPORT INFORMATION
  Report Type: 
  Country: None (occurrence: None)
  Receive Date: 20120727
  Receipt Date: 20120719
  Transmission Date: 20120928
  Serious: Yes (Death, Disabling, Other)
  Sender: FDA-Public Use
  Company Number: AU-ACTELION-A-CH2011-48098

PATIENT
  Sex: Male

DRUGS (1)
  1. ZAVESCA [Suspect]
     Indication: NIEMANN-PICK DISEASE
     Dosage: 200 MG, TID
     Route: 048
     Dates: start: 20070101, end: 20120630

REACTIONS (5)
  - ATAXIA [None]
  - PALLIATIVE CARE [None]
  - NIEMANN-PICK DISEASE [None]
  - DISEASE PROGRESSION [None]
  - DYSPHAGIA [None]
